FAERS Safety Report 23953483 (Version 1)
Quarter: 2024Q2

REPORT INFORMATION
  Report Type: Spontaneous
  Country: PT (occurrence: PT)
  Receive Date: 20240608
  Receipt Date: 20240608
  Transmission Date: 20240716
  Serious: Yes (Other)
  Sender: FDA-Public Use
  Company Number: PT-PIRAMAL PHARMA LIMITED-2024-PPL-000399

PATIENT
  Age: 37 Year
  Sex: Female

DRUGS (3)
  1. BUPIVACAINE [Suspect]
     Active Substance: BUPIVACAINE
     Indication: Caesarean section
     Dosage: 1.6 MILLIGRAM
     Route: 008
  2. SUFENTANIL [Suspect]
     Active Substance: SUFENTANIL
     Indication: Caesarean section
     Dosage: 2 MICROGRAM
     Route: 008
  3. LIDOCAINE [Concomitant]
     Active Substance: LIDOCAINE
     Indication: Anaesthesia
     Dosage: 9.5 MILLIGRAM
     Route: 065

REACTIONS (4)
  - Paraesthesia [Recovered/Resolved]
  - Terminal state [Recovered/Resolved]
  - Apnoea [Recovered/Resolved]
  - Maternal exposure during delivery [Unknown]
